FAERS Safety Report 13347489 (Version 1)
Quarter: 2017Q1

REPORT INFORMATION
  Report Type: Report from Study
  Country: US (occurrence: CR)
  Receive Date: 20170317
  Receipt Date: 20170317
  Transmission Date: 20170428
  Serious: Yes (Other)
  Sender: FDA-Public Use
  Company Number: US-SUNOVION-2017SUN001211

PATIENT

DRUGS (2)
  1. INDACATEROL AND GLYCOPYRROLATE [Suspect]
     Active Substance: GLYCOPYRROLATE\INDACATEROL MALEATE
     Indication: PRODUCT USED FOR UNKNOWN INDICATION
     Dosage: 1 DF (0.11/0.05 MG), UNK
     Route: 065
  2. INDACATEROL AND GLYCOPYRROLATE [Suspect]
     Active Substance: GLYCOPYRROLATE\INDACATEROL MALEATE
     Dosage: UNK
     Route: 065
     Dates: start: 20170308

REACTIONS (5)
  - Hypoacusis [Unknown]
  - Lung disorder [Unknown]
  - Diabetes mellitus [Unknown]
  - Cognitive disorder [Unknown]
  - Malaise [Unknown]
